FAERS Safety Report 7866027-2 (Version None)
Quarter: 2011Q4

REPORT INFORMATION
  Report Type: 
  Country: None (occurrence: None)
  Receive Date: 20111028
  Receipt Date: 20110411
  Transmission Date: 20120403
  Serious: No
  Sender: FDA-Public Use
  Company Number: US-GLAXOSMITHKLINE-A0922458A

PATIENT
  Age: 64 Year
  Sex: Male

DRUGS (12)
  1. CITALOPRAM HYDROBROMIDE [Concomitant]
  2. XANAX [Concomitant]
  3. ASPIRIN [Concomitant]
  4. SENNA [Concomitant]
  5. QVAR 80 [Concomitant]
  6. SPIRIVA [Concomitant]
  7. ZOCOR [Concomitant]
  8. SINGULAIR [Concomitant]
  9. ADVAIR DISKUS 100/50 [Suspect]
     Indication: CHRONIC OBSTRUCTIVE PULMONARY DISEASE
     Dosage: 1PUFF TWICE PER DAY
     Route: 055
     Dates: start: 20110101
  10. CAPTOPRIL [Concomitant]
  11. WARFARIN SODIUM [Concomitant]
  12. COMBIVENT [Concomitant]

REACTIONS (5)
  - OROPHARYNGEAL PAIN [None]
  - MYALGIA [None]
  - APHONIA [None]
  - DYSPNOEA [None]
  - HEADACHE [None]
